FAERS Safety Report 17896097 (Version 2)
Quarter: 2020Q3

REPORT INFORMATION
  Report Type: Spontaneous
  Country: CA (occurrence: CA)
  Receive Date: 20200615
  Receipt Date: 20200721
  Transmission Date: 20201103
  Serious: Yes (Other)
  Sender: FDA-Public Use
  Company Number: CA-SHIRE-CA202019242

PATIENT

DRUGS (1)
  1. GAMMAGARD LIQUID [Suspect]
     Active Substance: HUMAN IMMUNOGLOBULIN G
     Indication: IMMUNOGLOBULINS DECREASED
     Dosage: 10 GRAM, ONE DOSE
     Route: 042
     Dates: start: 20200415

REACTIONS (6)
  - Chills [Unknown]
  - Hypertension [Unknown]
  - Infusion related reaction [Unknown]
  - Nausea [Unknown]
  - Blood immunoglobulin A decreased [Unknown]
  - Vomiting [Unknown]

NARRATIVE: CASE EVENT DATE: 20200415
